FAERS Safety Report 10042537 (Version 1)
Quarter: 2014Q1

REPORT INFORMATION
  Report Type: Spontaneous
  Country: US (occurrence: US)
  Receive Date: 20140327
  Receipt Date: 20140327
  Transmission Date: 20141002
  Serious: No
  Sender: FDA-Public Use
  Company Number: US-ASTRAZENECA-2013SE46846

PATIENT
  Age: 63 Year
  Sex: Female
  Weight: 47.6 kg

DRUGS (12)
  1. PULMICORT FLEXHALER [Suspect]
     Indication: ASTHMA
     Route: 055
  2. NEXIUM [Suspect]
     Indication: GASTROOESOPHAGEAL REFLUX DISEASE
     Route: 048
     Dates: start: 2008
  3. PRILOSEC OTC [Suspect]
     Indication: GASTROOESOPHAGEAL REFLUX DISEASE
     Route: 048
     Dates: start: 2007, end: 2007
  4. PREMARIN [Concomitant]
     Route: 048
     Dates: start: 1989
  5. REFRESH [Concomitant]
     Indication: PH BODY FLUID ABNORMAL
     Route: 050
     Dates: start: 20130606
  6. TESTOSTERONE [Concomitant]
     Indication: LIBIDO DISORDER
     Dosage: 1MG/GM DAILY
     Route: 061
     Dates: start: 1995
  7. ALLEGRA [Concomitant]
     Route: 048
  8. ALLERGY SHOTS [Concomitant]
     Route: 058
  9. TYLENOL [Concomitant]
     Dosage: PRN
     Route: 048
  10. XOPENEX [Concomitant]
     Indication: ASTHMA
     Dosage: PRN
     Route: 055
     Dates: start: 2009
  11. B12 [Concomitant]
     Indication: VITAMIN B12 DECREASED
     Dosage: 100MCG MONTH
     Route: 058
     Dates: start: 201205
  12. MOMETASONE [Concomitant]
     Indication: ECZEMA
     Dosage: DAILY
     Route: 061

REACTIONS (13)
  - Skin disorder [Unknown]
  - Lymphadenopathy [Unknown]
  - Vaginal infection [Unknown]
  - Hair disorder [Unknown]
  - Skin disorder [Unknown]
  - Vitamin B12 decreased [Unknown]
  - Basedow^s disease [Unknown]
  - Hypoaesthesia [Unknown]
  - Diarrhoea [Unknown]
  - Constipation [Unknown]
  - Headache [Unknown]
  - Eczema [Unknown]
  - Drug dose omission [Unknown]
